FAERS Safety Report 17858153 (Version 2)
Quarter: 2020Q2

REPORT INFORMATION
  Report Type: Spontaneous
  Country: CH (occurrence: CH)
  Receive Date: 20200604
  Receipt Date: 20200618
  Transmission Date: 20200714
  Serious: Yes (Other)
  Sender: FDA-Public Use
  Company Number: CH-TEVA-2020-CH-1242808

PATIENT
  Age: 53 Year
  Sex: Male

DRUGS (4)
  1. MIRTAZAPIN-MEPHA LACTAB [Suspect]
     Active Substance: MIRTAZAPINE
     Indication: DEPRESSION
     Dosage: 15 MILLIGRAM DAILY; ONGOING, TABLET STRENGTH 30 MG
     Route: 048
     Dates: start: 20200429
  2. METFORMIN [Concomitant]
     Active Substance: METFORMIN HYDROCHLORIDE
     Indication: DIABETES MELLITUS
     Dosage: 1500 MILLIGRAM DAILY; 1/2-0-1-0
     Route: 048
  3. TEMESTA EXPIDET 1MG [Concomitant]
     Indication: DEPRESSION
     Route: 060
     Dates: start: 20200428
  4. OZURDEX [Concomitant]
     Active Substance: DEXAMETHASONE
     Indication: DIABETIC RETINOPATHY
     Route: 031

REACTIONS (1)
  - Ocular hypertension [Unknown]

NARRATIVE: CASE EVENT DATE: 2020
